FAERS Safety Report 19193231 (Version 1)
Quarter: 2021Q2

REPORT INFORMATION
  Report Type: Spontaneous
  Country: GR (occurrence: GR)
  Receive Date: 20210429
  Receipt Date: 20210429
  Transmission Date: 20210717
  Serious: Yes (Hospitalization, Other)
  Sender: FDA-Public Use
  Company Number: GR-ABBVIE-21K-066-3874093-00

PATIENT
  Age: 52 Year
  Sex: Female

DRUGS (1)
  1. HUMIRA [Suspect]
     Active Substance: ADALIMUMAB
     Indication: ANKYLOSING SPONDYLITIS
     Route: 058
     Dates: start: 2006

REACTIONS (8)
  - Swollen tongue [Unknown]
  - Blood uric acid increased [Unknown]
  - Lip swelling [Unknown]
  - Anaphylactic shock [Unknown]
  - Nephrolithiasis [Recovered/Resolved]
  - Rash [Unknown]
  - Anaphylactic shock [Recovered/Resolved]
  - Nephrolithiasis [Unknown]

NARRATIVE: CASE EVENT DATE: 2014
